FAERS Safety Report 5725821-4 (Version None)
Quarter: 2008Q2

REPORT INFORMATION
  Report Type: 
  Country: None (occurrence: None)
  Receive Date: 20080429
  Receipt Date: 20080418
  Transmission Date: 20081010
  Serious: Yes (Death, Hospitalization)
  Sender: FDA-Public Use
  Company Number: 2008US000789

PATIENT
  Age: 29 Year
  Sex: Female
  Weight: 110.8 kg

DRUGS (14)
  1. PROGRAF [Suspect]
     Indication: HEART TRANSPLANT
     Dosage: 4 MG, BID, ORAL; 1 MG, BID, ORAL
     Route: 048
     Dates: start: 20070928, end: 20071106
  2. PROGRAF [Suspect]
     Indication: HEART TRANSPLANT
     Dosage: 4 MG, BID, ORAL; 1 MG, BID, ORAL
     Route: 048
     Dates: start: 20071106
  3. PREDNISOLONE ACETATE [Concomitant]
  4. RAPAMUNE [Concomitant]
  5. CARDIZEM CD [Concomitant]
  6. ALTACE [Concomitant]
  7. SLOW-MAG (MAGNESIUM CHLORIDE ANHYDROUS) [Concomitant]
  8. NEXIUM [Concomitant]
  9. PRAVACHOL [Concomitant]
  10. CALCIUM CARBONATE [Concomitant]
  11. VALCYTE [Concomitant]
  12. ASPIRIN [Concomitant]
  13. NYSTATIN [Concomitant]
  14. BACTRIM DS [Concomitant]

REACTIONS (41)
  - ACTIVATED PARTIAL THROMBOPLASTIN TIME PROLONGED [None]
  - BACTERAEMIA [None]
  - BLOOD BILIRUBIN INCREASED [None]
  - BLOOD BILIRUBIN UNCONJUGATED INCREASED [None]
  - BLOOD CULTURE POSITIVE [None]
  - BLOOD GLUCOSE INCREASED [None]
  - BLOOD LACTATE DEHYDROGENASE INCREASED [None]
  - BRADYCARDIA [None]
  - BRONCHOALVEOLAR LAVAGE ABNORMAL [None]
  - CARDIAC ARREST [None]
  - CARDIOGENIC SHOCK [None]
  - CONTINUOUS HAEMODIAFILTRATION [None]
  - CULTURE TISSUE SPECIMEN POSITIVE [None]
  - ENTEROBACTER INFECTION [None]
  - EPISTAXIS [None]
  - ESCHERICHIA INFECTION [None]
  - FUNGAL INFECTION [None]
  - HAEMODYNAMIC INSTABILITY [None]
  - HEART TRANSPLANT REJECTION [None]
  - HYPOTENSION [None]
  - IMMUNOSUPPRESSANT DRUG LEVEL INCREASED [None]
  - INTERNATIONAL NORMALISED RATIO INCREASED [None]
  - IRON BINDING CAPACITY TOTAL DECREASED [None]
  - KLEBSIELLA INFECTION [None]
  - LEFT VENTRICULAR DYSFUNCTION [None]
  - MULTI-ORGAN FAILURE [None]
  - PANCYTOPENIA [None]
  - PNEUMONIA [None]
  - POST PROCEDURAL HAEMORRHAGE [None]
  - PROTHROMBIN TIME PROLONGED [None]
  - PUPIL FIXED [None]
  - RENAL FAILURE ACUTE [None]
  - RESPIRATORY ACIDOSIS [None]
  - RESPIRATORY SYNCYTIAL VIRUS INFECTION [None]
  - RIGHT VENTRICULAR DYSFUNCTION [None]
  - SEPSIS [None]
  - STREPTOCOCCAL INFECTION [None]
  - TONGUE HAEMORRHAGE [None]
  - TONGUE ULCERATION [None]
  - UPPER RESPIRATORY TRACT INFECTION [None]
  - VENTRICULAR TACHYCARDIA [None]
